FAERS Safety Report 25586753 (Version 1)
Quarter: 2025Q3

REPORT INFORMATION
  Report Type: Spontaneous
  Country: US (occurrence: None)
  Receive Date: 20250720
  Receipt Date: 20250720
  Transmission Date: 20251021
  Serious: Yes (Other)
  Sender: FDA-CTU
  Company Number: None

PATIENT
  Age: 35 Year
  Sex: Female
  Weight: 91.35 kg

DRUGS (15)
  1. LEVOCARNITINE\TIRZEPATIDE [Suspect]
     Active Substance: LEVOCARNITINE\TIRZEPATIDE
     Indication: Obesity
     Route: 058
     Dates: start: 20250720, end: 20250720
  2. LAMICTAL [Concomitant]
     Active Substance: LAMOTRIGINE
  3. LATUDA [Concomitant]
     Active Substance: LURASIDONE HYDROCHLORIDE
  4. LITHIUM [Concomitant]
     Active Substance: LITHIUM
  5. Wellbutrin XL (bupropion) [Concomitant]
  6. ZEPBOUND [Concomitant]
     Active Substance: TIRZEPATIDE
  7. LACTASE [Concomitant]
     Active Substance: LACTASE
  8. BENADRYL [Concomitant]
     Active Substance: DIPHENHYDRAMINE HYDROCHLORIDE
  9. ZOFRAN [Concomitant]
     Active Substance: ONDANSETRON HYDROCHLORIDE
  10. LACTULOSE [Concomitant]
     Active Substance: LACTULOSE
  11. VITAMINS [Concomitant]
     Active Substance: VITAMINS
  12. Daily vitamin D supplement [Concomitant]
  13. Daily iron supplement [Concomitant]
  14. COLACE [Concomitant]
     Active Substance: DOCUSATE SODIUM
  15. DULCOLAX (BISACODYL) [Concomitant]
     Active Substance: BISACODYL

REACTIONS (2)
  - Nausea [None]
  - Vomiting [None]

NARRATIVE: CASE EVENT DATE: 20250720
